FAERS Safety Report 25561608 (Version 1)
Quarter: 2025Q3

REPORT INFORMATION
  Report Type: Report from Study
  Country: GB (occurrence: GB)
  Receive Date: 20250716
  Receipt Date: 20250716
  Transmission Date: 20251020
  Serious: Yes (Other)
  Sender: CELLTRION
  Company Number: GB-CELLTRION INC.-2025GB022973

PATIENT

DRUGS (1)
  1. ADALIMUMAB-AATY [Suspect]
     Active Substance: ADALIMUMAB-AATY
     Indication: Colitis ulcerative
     Dosage: 40 MG, EVERY 2 WEEKS; INJECT ONE PRE-FILLED PEN EVERY TWO WEEKS; STOP DATE: JUL 2025
     Route: 058
     Dates: start: 202409

REACTIONS (6)
  - Swelling [Recovered/Resolved]
  - Nasal ulcer [Recovered/Resolved]
  - Acne [Recovered/Resolved]
  - Oral herpes [Recovered/Resolved]
  - Urticaria [Recovered/Resolved]
  - Lupus-like syndrome [Recovered/Resolved]
